FAERS Safety Report 8777055 (Version 2)
Quarter: 2012Q4

REPORT INFORMATION
  Report Type: 
  Country: JP (occurrence: JP)
  Receive Date: 20120911
  Receipt Date: 20121009
  Transmission Date: 20130627
  Serious: Yes (Hospitalization)
  Sender: FDA-Public Use
  Company Number: JP-BRISTOL-MYERS SQUIBB COMPANY-16946790

PATIENT
  Age: 5 None
  Sex: Male

DRUGS (4)
  1. STOCRIN TABS 600 MG [Suspect]
     Indication: HIV INFECTION
     Dosage: Interrupted on 30Aug12 resumed on 03Sep12. Form: film coated tabs
     Route: 048
     Dates: start: 20120803
  2. VIDEX EC [Suspect]
     Indication: HIV INFECTION
     Route: 065
     Dates: start: 20120724
  3. CELSENTRI [Suspect]
     Indication: HIV INFECTION
     Dosage: Tabs
     Route: 048
     Dates: start: 20120724
  4. TRUVADA [Suspect]
     Dosage: Tablet
     Dates: start: 20120724

REACTIONS (2)
  - Urticaria [Recovered/Resolved]
  - Pyrexia [Recovered/Resolved]
